FAERS Safety Report 22993763 (Version 4)
Quarter: 2023Q4

REPORT INFORMATION
  Report Type: Spontaneous
  Country: US (occurrence: US)
  Receive Date: 20230927
  Receipt Date: 20231201
  Transmission Date: 20240110
  Serious: Yes (Other)
  Sender: FDA-Public Use
  Company Number: US-Calliditas-2023CAL01252

PATIENT
  Age: 76 Year
  Sex: Female
  Weight: 35.38 kg

DRUGS (1)
  1. TARPEYO [Suspect]
     Active Substance: BUDESONIDE
     Indication: IgA nephropathy
     Dosage: 16 MG (4 MG CAPSULES) ONCE DAILY
     Route: 048
     Dates: start: 20230201

REACTIONS (7)
  - Insomnia [Unknown]
  - Abdominal distension [Recovered/Resolved]
  - Increased appetite [Unknown]
  - Myalgia [Unknown]
  - Femur fracture [Unknown]
  - Osteoporosis [Unknown]
  - Musculoskeletal stiffness [Unknown]
